FAERS Safety Report 17927733 (Version 6)
Quarter: 2021Q3

REPORT INFORMATION
  Report Type: Spontaneous
  Country: US (occurrence: US)
  Receive Date: 20200623
  Receipt Date: 20210913
  Transmission Date: 20211014
  Serious: No
  Sender: FDA-Public Use
  Company Number: US-GLOBAL BLOOD THERAPEUTICS INC-US-GBT-20-01280

PATIENT
  Age: 32 Year
  Sex: Female

DRUGS (4)
  1. OXBRYTA [Suspect]
     Active Substance: VOXELOTOR
     Route: 048
     Dates: start: 20200716, end: 20210607
  2. OXBRYTA [Suspect]
     Active Substance: VOXELOTOR
     Route: 048
     Dates: start: 20210608
  3. IRON SUPPLEMENTS (SLOW FE) [Concomitant]
     Indication: PRODUCT USED FOR UNKNOWN INDICATION
     Dosage: NOT PROVIDED
  4. OXBRYTA [Suspect]
     Active Substance: VOXELOTOR
     Indication: SICKLE CELL DISEASE
     Route: 048
     Dates: start: 20200305, end: 20200715

REACTIONS (16)
  - Decreased appetite [Unknown]
  - Menstrual disorder [Unknown]
  - Pain [Unknown]
  - Diarrhoea [Unknown]
  - Sickle cell anaemia with crisis [Not Recovered/Not Resolved]
  - Sickle cell anaemia with crisis [Unknown]
  - Weight decreased [Unknown]
  - Sickle cell anaemia with crisis [Recovered/Resolved]
  - Arthralgia [Not Recovered/Not Resolved]
  - Sickle cell anaemia with crisis [Unknown]
  - Heavy menstrual bleeding [Unknown]
  - Nausea [Unknown]
  - Asthenia [Unknown]
  - Sickle cell anaemia with crisis [Unknown]
  - Sickle cell anaemia with crisis [Recovered/Resolved]
  - Product dose omission issue [Unknown]

NARRATIVE: CASE EVENT DATE: 2020
